FAERS Safety Report 10486382 (Version 2)
Quarter: 2014Q4

REPORT INFORMATION
  Report Type: Spontaneous
  Country: CM (occurrence: None)
  Receive Date: 20140929
  Receipt Date: 20141020
  Transmission Date: 20150528
  Serious: Yes (Life-Threatening, Hospitalization)
  Sender: FDA-Public Use
  Company Number: 2014AMD00101

PATIENT
  Age: 43 Year
  Sex: Male

DRUGS (2)
  1. IVERMECTIN. [Suspect]
     Active Substance: IVERMECTIN
     Indication: FILARIASIS
     Dosage: 1 TABLET
     Route: 048
     Dates: start: 20140802
  2. ALBENDAZOLE TABLETS (ALBENDAZOLE) TABLET [Suspect]
     Active Substance: ALBENDAZOLE
     Indication: FILARIASIS
     Dosage: 1 TABLETS 1X/DAY, ORAL
     Route: 048
     Dates: start: 20140802

REACTIONS (4)
  - Coma [None]
  - Conjunctival haemorrhage [None]
  - Headache [None]
  - Abasia [None]

NARRATIVE: CASE EVENT DATE: 20140804
